FAERS Safety Report 11880462 (Version 2)
Quarter: 2016Q1

REPORT INFORMATION
  Report Type: Spontaneous
  Country: US (occurrence: US)
  Receive Date: 20151230
  Receipt Date: 20160205
  Transmission Date: 20160526
  Serious: No
  Sender: FDA-Public Use
  Company Number: US-PFIZER INC-2015433150

PATIENT
  Age: 79 Year
  Sex: Female

DRUGS (2)
  1. ADVIL [Suspect]
     Active Substance: IBUPROFEN
     Indication: BACK PAIN
     Dosage: 200 MG, 2X/DAY
     Route: 048
  2. SYNTHROID [Concomitant]
     Active Substance: LEVOTHYROXINE SODIUM
     Indication: HYPOTHYROIDISM
     Dosage: 150 UG, UNK

REACTIONS (5)
  - Peripheral swelling [Not Recovered/Not Resolved]
  - Product taste abnormal [Unknown]
  - Oedema peripheral [Not Recovered/Not Resolved]
  - Product quality issue [Unknown]
  - Glossodynia [Unknown]

NARRATIVE: CASE EVENT DATE: 201510
